FAERS Safety Report 8892461 (Version 3)
Quarter: 2013Q1

REPORT INFORMATION
  Report Type: Spontaneous
  Country: AR (occurrence: None)
  Receive Date: 20121031
  Receipt Date: 20121207
  Transmission Date: 20140127
  Serious: Yes (Life-Threatening, Hospitalization)
  Sender: FDA-Public Use
  Company Number: FK201203205

PATIENT
  Sex: 0

DRUGS (4)
  1. PROPOFOL [Suspect]
     Indication: SEDATION
     Route: 042
  2. MIDAZOLAM [Suspect]
     Indication: SEDATION
  3. FENTANYL [Suspect]
     Indication: SEDATION
  4. HYOSCINE [Suspect]
     Indication: SEDATION

REACTIONS (6)
  - Gastric disorder [None]
  - Hepatitis C [None]
  - Pyrexia [None]
  - Jaundice [None]
  - Wrong technique in drug usage process [None]
  - Suspected transmission of an infectious agent via product [None]
